FAERS Safety Report 9228525 (Version 1)
Quarter: 2013Q2

REPORT INFORMATION
  Report Type: Spontaneous
  Country: IT (occurrence: IT)
  Receive Date: 20130412
  Receipt Date: 20130412
  Transmission Date: 20140414
  Serious: Yes (Death, Hospitalization)
  Sender: FDA-Public Use
  Company Number: IT-GLAXOSMITHKLINE-B0883089A

PATIENT
  Age: 77 Year
  Sex: Female

DRUGS (7)
  1. ARIXTRA [Suspect]
     Indication: PULMONARY EMBOLISM
     Dosage: 2.5MG PER DAY
     Route: 058
     Dates: start: 20121101, end: 20130324
  2. TICLOPIDINA [Suspect]
     Indication: PULMONARY EMBOLISM
     Dosage: 500MG PER DAY
     Route: 048
     Dates: start: 20120601, end: 20130324
  3. LORAZEPAM [Concomitant]
     Route: 065
  4. CALCIUM CARBONATE [Concomitant]
     Route: 065
  5. ACTONEL [Concomitant]
     Route: 065
  6. FOZNOL [Concomitant]
     Route: 065
  7. DAPAROX [Concomitant]
     Dosage: 30DROP PER DAY
     Route: 048

REACTIONS (1)
  - Subarachnoid haemorrhage [Fatal]
